FAERS Safety Report 6704863-6 (Version None)
Quarter: 2010Q2

REPORT INFORMATION
  Report Type: 
  Country: None (occurrence: None)
  Receive Date: 20100430
  Receipt Date: 20100202
  Transmission Date: 20101027
  Serious: No
  Sender: FDA-Public Use
  Company Number: US-ASTRAZENECA-2010SE04906

PATIENT
  Sex: Female
  Weight: 89.8 kg

DRUGS (9)
  1. NEXIUM [Suspect]
     Indication: GASTROOESOPHAGEAL REFLUX DISEASE
     Route: 048
     Dates: start: 20091201
  2. VITAMIN TAB [Concomitant]
  3. LAVAZA [Concomitant]
  4. SIMVUSTATIN [Concomitant]
  5. AMLODIPINE BESYLATE [Concomitant]
  6. LIPISIDE [Concomitant]
  7. JANUVIA [Concomitant]
  8. METFORMIN [Concomitant]
  9. MICARDIS [Concomitant]

REACTIONS (1)
  - BLOOD GLUCOSE INCREASED [None]
